FAERS Safety Report 5501830-5 (Version None)
Quarter: 2007Q4

REPORT INFORMATION
  Report Type: 
  Country: None (occurrence: None)
  Receive Date: 20071030
  Receipt Date: 20061026
  Transmission Date: 20080405
  Serious: No
  Sender: FDA-Public Use
  Company Number: A0624969A

PATIENT
  Sex: Female

DRUGS (1)
  1. SEREVENT [Suspect]
     Indication: ASTHMA
     Route: 055

REACTIONS (2)
  - ORAL DISORDER [None]
  - THROAT LESION [None]
